FAERS Safety Report 10447468 (Version 1)
Quarter: 2014Q3

REPORT INFORMATION
  Report Type: Spontaneous
  Country: US (occurrence: US)
  Receive Date: 20140911
  Receipt Date: 20140911
  Transmission Date: 20150326
  Serious: Yes (Other)
  Sender: FDA-Public Use
  Company Number: PHEH2014US016448

PATIENT
  Age: 64 Year
  Sex: Male
  Weight: 92 kg

DRUGS (7)
  1. NILOTINIB [Suspect]
     Active Substance: NILOTINIB
     Dosage: UNK UKN, UNK
  2. PROCHLORPERAZINE. [Concomitant]
     Active Substance: PROCHLORPERAZINE
     Dosage: 10 MG, UNK
     Dates: start: 20140505, end: 20140606
  3. GLEEVEC [Suspect]
     Active Substance: IMATINIB MESYLATE
     Dosage: UNK UKN, UNK
  4. SPRYCEL [Suspect]
     Active Substance: DASATINIB
     Dosage: UNK UKN, UNK
  5. ATORVASTATIN CALCIUM. [Concomitant]
     Active Substance: ATORVASTATIN CALCIUM
     Indication: LIPIDS INCREASED
     Dosage: 20 MG, QD
     Route: 048
     Dates: start: 20121219, end: 20140606
  6. GLEEVEC [Suspect]
     Active Substance: IMATINIB MESYLATE
     Indication: CHRONIC MYELOID LEUKAEMIA
     Dosage: 400 MG, DAILY
     Route: 048
     Dates: start: 20140422, end: 20140505
  7. BOSUTINIB [Suspect]
     Active Substance: BOSUTINIB
     Indication: CHRONIC MYELOID LEUKAEMIA
     Dosage: 500 MG, UNK
     Route: 048
     Dates: end: 20140604

REACTIONS (19)
  - Pancreatitis [Unknown]
  - Aspartate aminotransferase increased [Unknown]
  - Jaundice [Recovered/Resolved]
  - Pulmonary fibrosis [Unknown]
  - Eosinophil count increased [Unknown]
  - Lipase increased [Recovered/Resolved]
  - Alanine aminotransferase increased [Unknown]
  - Chromaturia [Recovered/Resolved]
  - Red cell distribution width increased [Unknown]
  - Dyspnoea [Unknown]
  - Abdominal pain [Recovered/Resolved]
  - Platelet count decreased [Unknown]
  - Febrile convulsion [Recovered/Resolved]
  - Rash macular [Unknown]
  - Rash pruritic [Unknown]
  - Rash [Recovered/Resolved]
  - Rash erythematous [Unknown]
  - Diarrhoea [Recovered/Resolved]
  - Pyrexia [Unknown]

NARRATIVE: CASE EVENT DATE: 20140505
